FAERS Safety Report 9537349 (Version 3)
Quarter: 2013Q4

REPORT INFORMATION
  Report Type: Report from Study
  Country: DE (occurrence: DE)
  Receive Date: 20130919
  Receipt Date: 20131028
  Transmission Date: 20140711
  Serious: Yes (Life-Threatening)
  Sender: FDA-Public Use
  Company Number: DE-GLAXOSMITHKLINE-Z0021212A

PATIENT
  Age: 49 Year
  Sex: Male
  Weight: 86.5 kg

DRUGS (1)
  1. OFATUMUMAB [Suspect]
     Indication: DIFFUSE LARGE B-CELL LYMPHOMA RECURRENT
     Route: 042
     Dates: start: 20130917, end: 20130917

REACTIONS (1)
  - Anaphylactic reaction [Recovered/Resolved]
